FAERS Safety Report 4389451-1 (Version None)
Quarter: 2004Q2

REPORT INFORMATION
  Report Type: 
  Country: None (occurrence: None)
  Receive Date: 20040630
  Receipt Date: 20040618
  Transmission Date: 20050107
  Serious: Yes (Other)
  Sender: FDA-Public Use
  Company Number: ZA-JNJFOC-20040603192

PATIENT
  Age: 22 Year
  Sex: Male
  Weight: 68 kg

DRUGS (6)
  1. REMICADE [Suspect]
     Dosage: 5 MG/KG, INTRAVENOUS
     Route: 042
     Dates: start: 20040422
  2. PREDNISOLONE [Concomitant]
  3. AZATHIOPRINE [Concomitant]
  4. FERROUS SULPHATE (FERROUS SULPHATE) [Concomitant]
  5. TITRALAC (TITRALAC) [Concomitant]
  6. VITAMIN D [Concomitant]

REACTIONS (1)
  - PULMONARY TUBERCULOSIS [None]
